FAERS Safety Report 4820608-9 (Version None)
Quarter: 2005Q4

REPORT INFORMATION
  Report Type: 
  Country: None (occurrence: None)
  Receive Date: 20051104
  Receipt Date: 20051014
  Transmission Date: 20060501
  Serious: Yes (Death)
  Sender: FDA-Public Use
  Company Number: US-GLAXOSMITHKLINE-A0578283A

PATIENT
  Age: 84 Year
  Sex: Male

DRUGS (1)
  1. HYCAMTIN [Suspect]
     Indication: COLON CANCER
     Dosage: 8MG UNKNOWN
     Route: 042
     Dates: start: 20050715, end: 20050722

REACTIONS (3)
  - COLON CANCER METASTATIC [None]
  - DISEASE PROGRESSION [None]
  - DYSPNOEA [None]
